FAERS Safety Report 16336693 (Version 1)
Quarter: 2019Q2

REPORT INFORMATION
  Report Type: Spontaneous
  Country: US (occurrence: US)
  Receive Date: 20190520
  Receipt Date: 20190520
  Transmission Date: 20190711
  Serious: No
  Sender: FDA-Public Use
  Company Number: None

PATIENT
  Age: 55 Year
  Sex: Female
  Weight: 72.9 kg

DRUGS (8)
  1. K2 [Concomitant]
     Active Substance: JWH-018
  2. BORON [Concomitant]
     Active Substance: BORON
  3. MULTI B VITAMINS [Concomitant]
  4. AIMOVIG [Suspect]
     Active Substance: ERENUMAB-AOOE
     Indication: MIGRAINE
     Dosage: ?          QUANTITY:1 INJECTION(S);OTHER FREQUENCY:ONCE A MONTH;OTHER ROUTE:INJECT SUBCUTANEOUSLY??
     Route: 058
     Dates: start: 20180828, end: 20190428
  5. ZOMIG [Concomitant]
     Active Substance: ZOLMITRIPTAN
  6. RESCUE MEDICINE FOR MIGRAINES [Concomitant]
  7. VITAMIN D3 [Concomitant]
     Active Substance: CHOLECALCIFEROL
  8. MAGNESIUM [Concomitant]
     Active Substance: MAGNESIUM

REACTIONS (4)
  - Arthralgia [None]
  - Pain in extremity [None]
  - Weight increased [None]
  - Musculoskeletal pain [None]

NARRATIVE: CASE EVENT DATE: 20180920
